FAERS Safety Report 8138454-X (Version None)
Quarter: 2012Q1

REPORT INFORMATION
  Report Type: 
  Country: None (occurrence: None)
  Receive Date: 20120215
  Receipt Date: 20120130
  Transmission Date: 20120608
  Serious: Yes (Other)
  Sender: FDA-Public Use
  Company Number: US-ROCHE-GNE309776

PATIENT
  Age: 32 Year
  Sex: Female

DRUGS (11)
  1. XOLAIR [Suspect]
     Dosage: 0.625 MG, UNK
     Route: 058
  2. XOLAIR [Suspect]
     Dosage: 37 MG, UNK
     Route: 058
  3. XOLAIR [Suspect]
     Dosage: REGIMEN 2
  4. XOLAIR [Suspect]
     Dosage: REGIMENN 3
  5. XOLAIR [Suspect]
     Dosage: 37 MG, UNK
     Route: 058
  6. XOLAIR [Suspect]
     Dosage: 1.25 MG, UNK
     Route: 058
  7. XOLAIR [Suspect]
     Dosage: 5 MG, UNK
  8. XOLAIR [Suspect]
     Indication: ASTHMA
     Dosage: 0.062 MG, SINGLE
     Route: 058
  9. XOLAIR [Suspect]
     Dosage: 2.5 MG, UNK
     Route: 058
  10. XOLAIR [Suspect]
     Dosage: 10 MG, UNK
     Route: 058
  11. XOLAIR [Suspect]
     Dosage: 20 MG, UNK
     Route: 058

REACTIONS (5)
  - ANAPHYLACTIC REACTION [None]
  - DRUG HYPERSENSITIVITY [None]
  - ASTHMA [None]
  - NAUSEA [None]
  - VOCAL CORD DISORDER [None]
